FAERS Safety Report 17370638 (Version 1)
Quarter: 2020Q1

REPORT INFORMATION
  Report Type: Spontaneous
  Country: US (occurrence: US)
  Receive Date: 20200205
  Receipt Date: 20200205
  Transmission Date: 20200409
  Serious: No
  Sender: FDA-Public Use
  Company Number: US-SA-2020SA030047

PATIENT
  Age: 60 Year
  Sex: Female
  Weight: 74.83 kg

DRUGS (1)
  1. DUPIXENT [Suspect]
     Active Substance: DUPILUMAB
     Indication: DERMATITIS ATOPIC
     Dosage: 300 MG, QOW, 300 MG/2ML PFS
     Route: 058

REACTIONS (2)
  - Product dose omission [Unknown]
  - Eczema [Unknown]

NARRATIVE: CASE EVENT DATE: 20200130
